FAERS Safety Report 25015013 (Version 1)
Quarter: 2025Q1

REPORT INFORMATION
  Report Type: Spontaneous
  Country: US (occurrence: US)
  Receive Date: 20250226
  Receipt Date: 20250226
  Transmission Date: 20250409
  Serious: No
  Sender: ABBVIE
  Company Number: US-ABBVIE-6148497

PATIENT
  Age: 72 Year
  Sex: Male

DRUGS (3)
  1. BYSTOLIC [Suspect]
     Active Substance: NEBIVOLOL HYDROCHLORIDE
     Indication: Product used for unknown indication
     Route: 065
  2. ORGOVYX [Suspect]
     Active Substance: RELUGOLIX
     Indication: Prostate cancer
     Route: 048
     Dates: start: 20250112
  3. ORGOVYX [Suspect]
     Active Substance: RELUGOLIX
     Indication: Prostate cancer
     Route: 048
     Dates: start: 20250111, end: 20250111

REACTIONS (14)
  - Hot flush [Not Recovered/Not Resolved]
  - Heart rate decreased [Unknown]
  - Nocturia [Unknown]
  - Dizziness [Not Recovered/Not Resolved]
  - Palpitations [Unknown]
  - Emotional disorder [Unknown]
  - Drug interaction [Not Recovered/Not Resolved]
  - Middle insomnia [Not Recovered/Not Resolved]
  - Erectile dysfunction [Not Recovered/Not Resolved]
  - Brain fog [Unknown]
  - Fatigue [Not Recovered/Not Resolved]
  - General physical condition abnormal [Not Recovered/Not Resolved]
  - Depression [Not Recovered/Not Resolved]
  - Headache [Recovered/Resolved]
